FAERS Safety Report 21239103 (Version 1)
Quarter: 2022Q3

REPORT INFORMATION
  Report Type: Spontaneous
  Country: AU (occurrence: AU)
  Receive Date: 20220822
  Receipt Date: 20220822
  Transmission Date: 20221027
  Serious: Yes (Other)
  Sender: FDA-Public Use
  Company Number: AU-UPSHER-SMITH LABORATORIES, LLC-2022USL00607

PATIENT
  Age: 46 Year
  Sex: Male
  Weight: 107 kg

DRUGS (1)
  1. TESTOSTERONE [Suspect]
     Active Substance: TESTOSTERONE
     Dosage: UNK UNK, 1X/WEEK
     Route: 065

REACTIONS (5)
  - Atrial fibrillation [Recovered/Resolved]
  - Cardiomyopathy [Recovered/Resolved]
  - Cardiac failure [Recovered/Resolved]
  - Polycythaemia [Recovered/Resolved]
  - Drug abuse [Recovered/Resolved]
